FAERS Safety Report 16506459 (Version 1)
Quarter: 2019Q3

REPORT INFORMATION
  Report Type: Report from Study
  Country: US (occurrence: US)
  Receive Date: 20190701
  Receipt Date: 20190701
  Transmission Date: 20191004
  Serious: Yes (Other)
  Sender: FDA-Public Use
  Company Number: US-GILEAD-2019-0415955

PATIENT
  Age: 70 Year
  Sex: Female

DRUGS (2)
  1. UPTRAVI [Concomitant]
     Active Substance: SELEXIPAG
  2. AMBRISENTAN [Suspect]
     Active Substance: AMBRISENTAN
     Indication: PRODUCT USED FOR UNKNOWN INDICATION
     Dosage: 10 MG
     Route: 065
     Dates: start: 20180215

REACTIONS (5)
  - Pulmonary fibrosis [Not Recovered/Not Resolved]
  - Hepatic enzyme increased [Unknown]
  - Nephropathy [Unknown]
  - Scleroderma [Not Recovered/Not Resolved]
  - Pericardial effusion [Not Recovered/Not Resolved]
